FAERS Safety Report 6223872-7 (Version None)
Quarter: 2009Q2

REPORT INFORMATION
  Report Type: 
  Country: None (occurrence: None)
  Receive Date: 20090611
  Receipt Date: 20090302
  Transmission Date: 20091009
  Serious: No
  Sender: FDA-Public Use
  Company Number: US-ABBOTT-09P-163-0560497-00

PATIENT
  Sex: Female
  Weight: 85.806 kg

DRUGS (2)
  1. HUMIRA [Suspect]
     Indication: PSORIASIS
     Route: 058
     Dates: start: 20081101
  2. ENBREL [Concomitant]
     Indication: PSORIASIS
     Route: 042

REACTIONS (3)
  - COUGH [None]
  - INFLUENZA [None]
  - UPPER RESPIRATORY TRACT CONGESTION [None]
